FAERS Safety Report 5287583-7 (Version None)
Quarter: 2007Q1

REPORT INFORMATION
  Report Type: 
  Country: None (occurrence: None)
  Receive Date: 20070126
  Receipt Date: 20060911
  Transmission Date: 20070707
  Serious: No
  Sender: FDA-Public Use
  Company Number: 2006CT001151

PATIENT
  Age: 70 Year
  Sex: Female
  Weight: 72.1 kg

DRUGS (9)
  1. VENTAVIS [Suspect]
     Indication: PULMONARY HYPERTENSION
     Dosage: 2.5 UG 6XD INH
     Route: 055
     Dates: start: 20060818, end: 20060906
  2. VITAMIN E [Concomitant]
  3. K-DUR 10 [Concomitant]
  4. AMLODIPINE [Concomitant]
  5. LASIX [Concomitant]
  6. SYNTHROID [Concomitant]
  7. AVANDIA [Concomitant]
  8. HYZAAR [Concomitant]
  9. TRACLEER [Concomitant]

REACTIONS (3)
  - ASTHENIA [None]
  - CHEST PAIN [None]
  - COUGH [None]
